FAERS Safety Report 6567152-9 (Version None)
Quarter: 2010Q1

REPORT INFORMATION
  Report Type: 
  Country: None (occurrence: None)
  Receive Date: 20100202
  Receipt Date: 20100129
  Transmission Date: 20100710
  Serious: Yes (Other)
  Sender: FDA-Public Use
  Company Number: FR-WYE-G04159909

PATIENT
  Sex: Male

DRUGS (12)
  1. TAZOCILLINE [Suspect]
     Dosage: 12 G TOTAL DAILY
     Route: 042
     Dates: start: 20081203
  2. DEXAMETHASONE [Suspect]
     Indication: ACUTE MYELOID LEUKAEMIA
     Dosage: 10 MG TOTAL DAILY
     Route: 048
     Dates: start: 20081203, end: 20081207
  3. ZAVEDOS [Suspect]
     Indication: ACUTE MYELOID LEUKAEMIA
     Dosage: 15.9 MG TOTAL DAILY
     Route: 042
     Dates: start: 20081205, end: 20081209
  4. ZAVEDOS [Suspect]
     Dosage: UNKNOWN
  5. RASBURICASE [Concomitant]
     Dosage: 16 MG TOTAL DAILY
     Route: 042
     Dates: start: 20081203, end: 20081206
  6. ATARAX [Concomitant]
     Dosage: 50 MG TOTAL DAILY
     Route: 048
     Dates: start: 20081205, end: 20081205
  7. KAYEXALATE [Concomitant]
     Dosage: UNKNOWN
     Route: 048
     Dates: start: 20081207, end: 20081207
  8. EMEND [Concomitant]
     Dosage: UNKNOWN
     Route: 048
     Dates: start: 20081208
  9. ARACYTINE [Suspect]
     Indication: ACUTE MYELOID LEUKAEMIA
     Dosage: 200 MG TOTAL DAILY
     Route: 030
     Dates: start: 20081203, end: 20081208
  10. ARACYTINE [Suspect]
     Dosage: UNKNOWN
  11. ARACYTINE [Suspect]
     Dosage: UNSPECIFIED HIGH DOSE
  12. FORLAX [Suspect]
     Dosage: 3 DOSES-FORM TOTAL DAILY
     Route: 048
     Dates: start: 20081205

REACTIONS (3)
  - BILIRUBIN CONJUGATED INCREASED [None]
  - C-REACTIVE PROTEIN INCREASED [None]
  - PANCREATITIS ACUTE [None]
